FAERS Safety Report 4622372-5 (Version None)
Quarter: 2005Q1

REPORT INFORMATION
  Report Type: 
  Country: None (occurrence: None)
  Receive Date: 20050325
  Receipt Date: 20050325
  Transmission Date: 20050727
  Serious: Yes (Hospitalization)
  Sender: FDA-Public Use
  Company Number: None

PATIENT
  Sex: Male

DRUGS (1)
  1. CARBON DIOXIDE [Suspect]

REACTIONS (4)
  - CONDITION AGGRAVATED [None]
  - CYANOSIS [None]
  - DEPRESSION [None]
  - MEDICATION ERROR [None]
